FAERS Safety Report 15376421 (Version 1)
Quarter: 2018Q3

REPORT INFORMATION
  Report Type: Spontaneous
  Country: CZ (occurrence: CZ)
  Receive Date: 20180912
  Receipt Date: 20180912
  Transmission Date: 20181010
  Serious: Yes (Death, Life-Threatening, Hospitalization)
  Sender: FDA-Public Use
  Company Number: PHHY2018CZ096184

PATIENT
  Age: 70 Year
  Sex: Male
  Weight: 80 kg

DRUGS (9)
  1. DOCETAXEL. [Suspect]
     Active Substance: DOCETAXEL
     Indication: NEOPLASM MALIGNANT
     Dosage: 150 MG, (1 TOTAL)
     Route: 042
     Dates: start: 20160803, end: 20160803
  2. RANITIDINE. [Concomitant]
     Active Substance: RANITIDINE
     Indication: PREMEDICATION
     Dosage: 50 MG/ML, (50 MG/ 2 ML)
     Route: 042
  3. MILURIT [Concomitant]
     Active Substance: ALLOPURINOL
     Indication: ARTHRITIS
     Dosage: 100 MG, QD
     Route: 048
     Dates: start: 20160609
  4. HYDROCORTISONE. [Concomitant]
     Active Substance: HYDROCORTISONE
     Indication: PREMEDICATION
     Dosage: 100 MG, (1 TOTAL)
     Route: 042
     Dates: start: 20160722, end: 20160722
  5. ALGIFEN NEO [Concomitant]
     Indication: PAIN
     Dosage: 180 GTT, QD (60 GTT, 3 X DAY)
     Route: 048
     Dates: start: 201509
  6. AGEN [Concomitant]
     Active Substance: AMLODIPINE BESYLATE
     Indication: HYPERTENSION
     Dosage: 5 MG, QD
     Route: 048
     Dates: start: 201602
  7. DITHIADEN [Concomitant]
     Active Substance: BISULEPIN
     Indication: PREMEDICATION
     Dosage: 0.5 MG/ML, QD (1 TOTAL) (SINGLE, 10 X 2 ML X 0.5 MG/ML)
     Route: 042
     Dates: start: 20160722, end: 20160722
  8. CARBOPLATIN. [Suspect]
     Active Substance: CARBOPLATIN
     Indication: NEOPLASM MALIGNANT
     Dosage: 335 MG, QD
     Route: 042
     Dates: start: 20160803, end: 20160803
  9. CETUXIMAB. [Suspect]
     Active Substance: CETUXIMAB
     Indication: SQUAMOUS CELL CARCINOMA
     Dosage: 800 MG, (11 DAY)
     Route: 042
     Dates: start: 20160722, end: 20160801

REACTIONS (1)
  - Sepsis [Fatal]

NARRATIVE: CASE EVENT DATE: 20160810
